FAERS Safety Report 18142174 (Version 2)
Quarter: 2020Q3

REPORT INFORMATION
  Report Type: Spontaneous
  Country: DE (occurrence: DE)
  Receive Date: 20200812
  Receipt Date: 20200916
  Transmission Date: 20201103
  Serious: Yes (Other)
  Sender: FDA-Public Use
  Company Number: DE-MYLANLABS-2020M1070101

PATIENT
  Age: 79 Year
  Sex: Female
  Weight: 95 kg

DRUGS (10)
  1. EZETIMIBE. [Concomitant]
     Active Substance: EZETIMIBE
     Indication: PRODUCT USED FOR UNKNOWN INDICATION
     Dosage: 10 MILLIGRAM, QD
  2. BISOPROLOL [Suspect]
     Active Substance: BISOPROLOL
     Dosage: 2.5 MILLIGRAM, 0.5 DAY (THERAPY START DATE: 20 JUL 2020)
     Dates: start: 20200720
  3. ELIQUIS [Concomitant]
     Active Substance: APIXABAN
     Indication: PRODUCT USED FOR UNKNOWN INDICATION
     Dosage: 5 MILLIGRAM, 0.5 DAY
  4. CANDECOR [Concomitant]
     Active Substance: CANDESARTAN CILEXETIL
     Indication: PRODUCT USED FOR UNKNOWN INDICATION
     Dosage: 4 MILLIGRAM, 0.5 DAY
  5. DIGIMERCK [Suspect]
     Active Substance: DIGITOXIN
     Indication: ARRHYTHMIA
     Dosage: 0.05 MILLIGRAM
     Dates: start: 202005
  6. BISOPROLOL [Suspect]
     Active Substance: BISOPROLOL
     Indication: PRODUCT USED FOR UNKNOWN INDICATION
     Dosage: 1 DOSAGE FORM, QD (THERAPY START DATE: 20 JUL 2020.)
     Dates: start: 20200720
  7. DIGIMERCK [Suspect]
     Active Substance: DIGITOXIN
     Dosage: 3 DOSAGE FORM, Q8H
     Dates: start: 20200520
  8. DIGIMERCK [Suspect]
     Active Substance: DIGITOXIN
     Dosage: 1 DOSAGE FORM, QD
     Dates: start: 20200523
  9. DIGIMERCK [Suspect]
     Active Substance: DIGITOXIN
     Dosage: BID (0.05 MG IN MORNING,1/2 TABLET (0.025 MG) IN EVENING)
     Dates: start: 20200626
  10. TORASEMID [Concomitant]
     Active Substance: TORSEMIDE
     Indication: PRODUCT USED FOR UNKNOWN INDICATION
     Dosage: 5MG/10MG
     Dates: start: 2014

REACTIONS (4)
  - Arrhythmia [Unknown]
  - Headache [Unknown]
  - Off label use [Unknown]
  - Drug level increased [Unknown]

NARRATIVE: CASE EVENT DATE: 202005
